FAERS Safety Report 8471864-X (Version None)
Quarter: 2012Q2

REPORT INFORMATION
  Report Type: 
  Country: None (occurrence: None)
  Receive Date: 20120627
  Receipt Date: 20120619
  Transmission Date: 20120825
  Serious: Yes (Hospitalization)
  Sender: FDA-Public Use
  Company Number: US-BAYER-2012-052577

PATIENT
  Age: 48 Year
  Sex: Female
  Weight: 68.027 kg

DRUGS (8)
  1. YAZ [Suspect]
     Indication: MENOPAUSAL SYMPTOMS
     Dosage: UNK
     Dates: start: 20081115, end: 20090921
  2. IBUPROFEN [Concomitant]
  3. YAZ [Suspect]
     Indication: MENORRHAGIA
  4. SYNTHROID [Concomitant]
     Dosage: UNK
     Dates: start: 20050101
  5. YASMIN [Suspect]
     Indication: PREMENSTRUAL SYNDROME
  6. DIAZEPAM [Concomitant]
     Indication: ANXIETY
     Dosage: UNK
     Dates: start: 20060101, end: 20100101
  7. YAZ [Suspect]
     Indication: MENOPAUSE
  8. YASMIN [Suspect]
     Indication: MENORRHAGIA
     Dosage: UNK
     Dates: start: 20050401, end: 20050529

REACTIONS (7)
  - ANHEDONIA [None]
  - PAIN [None]
  - ANXIETY [None]
  - FEAR [None]
  - DEEP VEIN THROMBOSIS [None]
  - INJURY [None]
  - PAIN IN EXTREMITY [None]
